FAERS Safety Report 16768694 (Version 2)
Quarter: 2019Q3

REPORT INFORMATION
  Report Type: Spontaneous
  Country: US (occurrence: US)
  Receive Date: 20190903
  Receipt Date: 20190917
  Transmission Date: 20191005
  Serious: Yes (Other)
  Sender: FDA-Public Use
  Company Number: US-NALPROPION PHARMACEUTICALS INC.-2019-008333

PATIENT
  Sex: Female

DRUGS (6)
  1. COLLAGEN [Concomitant]
     Active Substance: COLLAGEN
     Indication: ARTHRALGIA
     Dosage: 1 TAB, QD (IN AM)
     Route: 048
  2. CONTRAVE [Suspect]
     Active Substance: BUPROPION HYDROCHLORIDE\NALTREXONE HYDROCHLORIDE
     Indication: WEIGHT CONTROL
     Dosage: 1 TABLET IN AM
     Route: 048
     Dates: start: 20190718, end: 20190718
  3. COLLAGEN [Concomitant]
     Active Substance: COLLAGEN
     Indication: BONE PAIN
  4. VITAMIN C [Concomitant]
     Active Substance: ASCORBIC ACID
     Indication: BONE PAIN
  5. VITAMIN C [Concomitant]
     Active Substance: ASCORBIC ACID
     Indication: ARTHRALGIA
     Dosage: 500 MG, QD (IN AM)
     Route: 048
  6. AMLODIPINE [Concomitant]
     Active Substance: AMLODIPINE BESYLATE
     Indication: HYPERTENSION
     Dosage: 10 MG, QD
     Route: 048

REACTIONS (3)
  - Drug hypersensitivity [Unknown]
  - Contusion [Unknown]
  - Tremor [Unknown]
